FAERS Safety Report 6175404-X (Version None)
Quarter: 2009Q2

REPORT INFORMATION
  Report Type: 
  Country: None (occurrence: None)
  Receive Date: 20090429
  Receipt Date: 20090420
  Transmission Date: 20091009
  Serious: Yes (Other)
  Sender: FDA-Public Use
  Company Number: CHPA2009US10065

PATIENT
  Age: 50 Year
  Sex: Female

DRUGS (3)
  1. VOLTAREN [Suspect]
     Indication: INFLAMMATION
     Dosage: TOPICAL
     Route: 061
     Dates: start: 20090401, end: 20090419
  2. VOLTAREN [Suspect]
     Indication: PAIN
     Dosage: TOPICAL
     Route: 061
     Dates: start: 20090401, end: 20090419
  3. VOLTAREN [Suspect]
     Indication: TIBIA FRACTURE
     Dosage: TOPICAL
     Route: 061
     Dates: start: 20090401, end: 20090419

REACTIONS (5)
  - CHEST DISCOMFORT [None]
  - CHEST PAIN [None]
  - DRUG ADMINISTERED AT INAPPROPRIATE SITE [None]
  - DYSPEPSIA [None]
  - MUSCULAR WEAKNESS [None]
